FAERS Safety Report 4712722-3 (Version None)
Quarter: 2005Q3

REPORT INFORMATION
  Report Type: 
  Country: None (occurrence: None)
  Receive Date: 20050701
  Receipt Date: 20050426
  Transmission Date: 20060218
  Serious: Yes (Hospitalization)
  Sender: FDA-Public Use
  Company Number: 2005066007

PATIENT
  Age: 11 Year
  Sex: Male

DRUGS (1)
  1. ZOLOFT [Suspect]
     Indication: DEPRESSION
     Dosage: 50 MG (50 MG, 1 IN 1 D), ORAL
     Route: 048
     Dates: start: 20050201

REACTIONS (4)
  - ANGER [None]
  - ANXIETY [None]
  - SUICIDAL IDEATION [None]
  - UNEVALUABLE EVENT [None]
